FAERS Safety Report 12898707 (Version 1)
Quarter: 2016Q4

REPORT INFORMATION
  Report Type: Spontaneous
  Country: US (occurrence: US)
  Receive Date: 20161101
  Receipt Date: 20161101
  Transmission Date: 20170207
  Serious: Yes (Hospitalization)
  Sender: FDA-Public Use
  Company Number: US-ASTRAZENECA-2016SF12881

PATIENT
  Age: 21068 Day
  Sex: Female

DRUGS (4)
  1. SYMBICORT [Suspect]
     Active Substance: BUDESONIDE\FORMOTEROL FUMARATE DIHYDRATE
     Indication: CHRONIC OBSTRUCTIVE PULMONARY DISEASE
     Dosage: 4 PUFFS TWICE DAILY
     Route: 055
     Dates: start: 201506
  2. SYMBICORT [Suspect]
     Active Substance: BUDESONIDE\FORMOTEROL FUMARATE DIHYDRATE
     Indication: PO2 DECREASED
     Dosage: 2 PUFFS TWICE DAILY AS PRESCRIBED
     Route: 055
     Dates: start: 201506
  3. SYMBICORT [Suspect]
     Active Substance: BUDESONIDE\FORMOTEROL FUMARATE DIHYDRATE
     Indication: CHRONIC OBSTRUCTIVE PULMONARY DISEASE
     Dosage: 2 PUFFS TWICE DAILY AS PRESCRIBED
     Route: 055
     Dates: start: 201506
  4. SYMBICORT [Suspect]
     Active Substance: BUDESONIDE\FORMOTEROL FUMARATE DIHYDRATE
     Indication: PO2 DECREASED
     Dosage: 4 PUFFS TWICE DAILY
     Route: 055
     Dates: start: 201506

REACTIONS (2)
  - Pneumonia [Unknown]
  - Medication error [Unknown]

NARRATIVE: CASE EVENT DATE: 20160803
